FAERS Safety Report 13347004 (Version 1)
Quarter: 2017Q1

REPORT INFORMATION
  Report Type: Spontaneous
  Country: SE (occurrence: SE)
  Receive Date: 20170317
  Receipt Date: 20170317
  Transmission Date: 20170428
  Serious: Yes (Hospitalization)
  Sender: FDA-Public Use
  Company Number: SE-MUNDIPHARMA DS AND PHARMACOVIGILANCE-GBR-2017-0044031

PATIENT
  Age: 75 Year
  Sex: Male

DRUGS (8)
  1. XARELTO [Concomitant]
     Active Substance: RIVAROXABAN
     Dates: start: 20141014
  2. CILAXORAL [Concomitant]
     Active Substance: SODIUM PICOSULFATE
     Dates: start: 20170201
  3. BISOPROLOL [Concomitant]
     Active Substance: BISOPROLOL
     Dates: start: 20141209
  4. TARGINIQ ER [Suspect]
     Active Substance: NALOXONE HYDROCHLORIDE\OXYCODONE HYDROCHLORIDE
     Indication: PAIN
     Dosage: 10MG/5MG (1-2 TABL X 2)
     Route: 048
     Dates: start: 20170206, end: 20170210
  5. FOLACIN                            /00024201/ [Concomitant]
     Active Substance: FOLIC ACID
     Dates: start: 20160317
  6. ENALAPRIL [Concomitant]
     Active Substance: ENALAPRIL
     Dates: start: 20141014
  7. BEHEPAN [Concomitant]
     Active Substance: HYDROXOCOBALAMIN
     Dates: start: 20160317
  8. FINASTERIDE. [Concomitant]
     Active Substance: FINASTERIDE
     Dates: start: 20150331

REACTIONS (1)
  - Hallucination, visual [Recovered/Resolved]

NARRATIVE: CASE EVENT DATE: 20170210
